FAERS Safety Report 5392823-X (Version None)
Quarter: 2007Q3

REPORT INFORMATION
  Report Type: 
  Country: None (occurrence: None)
  Receive Date: 20070718
  Receipt Date: 20070717
  Transmission Date: 20080115
  Serious: Yes (Hospitalization)
  Sender: FDA-Public Use
  Company Number: GRT 2007-12604

PATIENT
  Age: 65 Year
  Sex: Female

DRUGS (3)
  1. LIDOCAINE [Suspect]
     Indication: NEURALGIA
  2. PREGABALIN [Suspect]
  3. PREGABALIN [Concomitant]

REACTIONS (2)
  - DEHYDRATION [None]
  - VOMITING [None]
